FAERS Safety Report 21301641 (Version 1)
Quarter: 2022Q3

REPORT INFORMATION
  Report Type: Report from Study
  Country: CA (occurrence: CA)
  Receive Date: 20220907
  Receipt Date: 20220907
  Transmission Date: 20221027
  Serious: Yes (Other)
  Sender: FDA-Public Use
  Company Number: CA-JNJFOC-20220907309

PATIENT
  Age: 36 Year
  Sex: Female
  Weight: 82 kg

DRUGS (1)
  1. REMICADE [Suspect]
     Active Substance: INFLIXIMAB
     Indication: Crohn^s disease
     Dosage: ON 02-SEP-2022, PATIENT RECEIVED 68TH INFLIXIMAB, RECOMBINANT INFUSION AND PARTIAL HARVEY-BRADSHAW W
     Route: 041
     Dates: start: 20130423

REACTIONS (4)
  - Colostomy [Unknown]
  - Crohn^s disease [Unknown]
  - Gastrointestinal stoma complication [Unknown]
  - COVID-19 [Recovering/Resolving]

NARRATIVE: CASE EVENT DATE: 20220826
